FAERS Safety Report 4444208-8 (Version None)
Quarter: 2004Q3

REPORT INFORMATION
  Report Type: 
  Country: None (occurrence: None)
  Receive Date: 20040902
  Receipt Date: 20040823
  Transmission Date: 20050211
  Serious: Yes (Death, Hospitalization, Other)
  Sender: FDA-Public Use
  Company Number: USA-2004-0016023

PATIENT
  Age: 34 Year
  Sex: Male

DRUGS (2)
  1. OXYCONTIN [Suspect]
     Indication: PAIN
     Dosage: UNK MG, UNK; ORAL (SEE IMAGE)
     Route: 048
     Dates: start: 20040601, end: 20040701
  2. OXYCONTIN [Suspect]
     Indication: PAIN
     Dosage: UNK MG, UNK; ORAL (SEE IMAGE)
     Route: 048
     Dates: start: 20040701, end: 20040701

REACTIONS (5)
  - CARDIAC DISORDER [None]
  - COMA [None]
  - DRUG ABUSER [None]
  - HYPOXIA [None]
  - OVERDOSE [None]
